FAERS Safety Report 6838261-1 (Version None)
Quarter: 2010Q3

REPORT INFORMATION
  Report Type: 
  Country: None (occurrence: None)
  Receive Date: 20100713
  Receipt Date: 20070605
  Transmission Date: 20110219
  Serious: No
  Sender: FDA-Public Use
  Company Number: US-PFIZER INC-2007047455

PATIENT
  Sex: Female
  Weight: 77.1 kg

DRUGS (10)
  1. CHANTIX [Suspect]
     Indication: SMOKING CESSATION THERAPY
     Dates: start: 20070101
  2. NIFEDICAL [Concomitant]
  3. FLUOXETINE HCL [Concomitant]
  4. PROTONIX [Concomitant]
  5. ATENOLOL [Concomitant]
  6. CLONAZEPAM [Concomitant]
  7. SIMVASTATIN [Concomitant]
  8. SEROQUEL [Concomitant]
  9. COLCHICINE [Concomitant]
  10. ACETYLSALICYLIC ACID [Concomitant]

REACTIONS (3)
  - DECREASED APPETITE [None]
  - NAUSEA [None]
  - VOMITING [None]
